FAERS Safety Report 22045690 (Version 3)
Quarter: 2023Q2

REPORT INFORMATION
  Report Type: Spontaneous
  Country: JP (occurrence: JP)
  Receive Date: 20230228
  Receipt Date: 20230602
  Transmission Date: 20230722
  Serious: Yes (Death, Hospitalization, Other)
  Sender: FDA-Public Use
  Company Number: JP-BAYER-2023A020972

PATIENT
  Age: 67 Year
  Sex: Male
  Weight: 75 kg

DRUGS (2)
  1. STIVARGA [Suspect]
     Active Substance: REGORAFENIB
     Indication: Colon cancer recurrent
     Dosage: 160MG
     Route: 048
     Dates: end: 20230104
  2. STIVARGA [Suspect]
     Active Substance: REGORAFENIB
     Indication: Colon cancer recurrent
     Dosage: 120 MG/DAY, 3 WEEKS ON, 1 WEEK OFF
     Route: 048
     Dates: start: 20230105

REACTIONS (10)
  - Hepatic failure [Fatal]
  - Melaena [Fatal]
  - Platelet count decreased [Fatal]
  - Altered state of consciousness [None]
  - Coma hepatic [None]
  - Blood loss anaemia [None]
  - Diarrhoea [None]
  - Palmar-plantar erythrodysaesthesia syndrome [None]
  - Dizziness [None]
  - Decreased appetite [None]

NARRATIVE: CASE EVENT DATE: 20230123
